FAERS Safety Report 9271907 (Version 1)
Quarter: 2013Q2

REPORT INFORMATION
  Report Type: Spontaneous
  Country: CA (occurrence: CA)
  Receive Date: 20130506
  Receipt Date: 20130506
  Transmission Date: 20140414
  Serious: Yes (Hospitalization, Other)
  Sender: FDA-Public Use
  Company Number: 2013SP001209

PATIENT
  Age: 2 Year
  Sex: Female
  Weight: 11 kg

DRUGS (1)
  1. ALVESCO INHALATION AEROSOL [Suspect]
     Indication: ASTHMA
     Route: 055
     Dates: start: 20120710, end: 20120710

REACTIONS (2)
  - Asthma [Unknown]
  - Off label use [None]
